FAERS Safety Report 15614436 (Version 1)
Quarter: 2018Q4

REPORT INFORMATION
  Report Type: Spontaneous
  Country: IN (occurrence: IN)
  Receive Date: 20181113
  Receipt Date: 20181113
  Transmission Date: 20190205
  Serious: Yes (Hospitalization, Other)
  Sender: FDA-Public Use
  Company Number: IN-BAUSCH-BL-2018-031112

PATIENT
  Age: 32 Year
  Sex: Male

DRUGS (1)
  1. METRONIDAZOLE. [Suspect]
     Active Substance: METRONIDAZOLE
     Indication: LIVER ABSCESS
     Route: 065

REACTIONS (1)
  - Encephalopathy [Recovering/Resolving]
